FAERS Safety Report 7130337-7 (Version None)
Quarter: 2010Q4

REPORT INFORMATION
  Report Type: 
  Country: None (occurrence: None)
  Receive Date: 20101101
  Receipt Date: 20100902
  Transmission Date: 20110411
  Serious: Yes (Other)
  Sender: FDA-Public Use
  Company Number: AMAG201000343

PATIENT
  Age: 61 Year
  Sex: Male
  Weight: 68 kg

DRUGS (16)
  1. FERAHEME [Suspect]
     Dosage: 510 MG, SINGLE, INTRAVENOUS; 150 MG, SINGLE, INTRAVENOUS
     Route: 042
     Dates: start: 20100810, end: 20100810
  2. FERAHEME [Suspect]
     Dosage: 510 MG, SINGLE, INTRAVENOUS; 150 MG, SINGLE, INTRAVENOUS
     Route: 042
     Dates: start: 20100814, end: 20100814
  3. BENADRYL (DIPHENHYDRAMINE HYDROCHLORIDE) INFUSION [Concomitant]
  4. COREG [Concomitant]
  5. PLAVIX [Concomitant]
  6. CRESTOR [Concomitant]
  7. COLACE (DOCUSATE SODIUM) [Concomitant]
  8. AVAPRO [Concomitant]
  9. ESOMEPRAZOLE (ESOMEPRAZOLE) [Concomitant]
  10. LEVEMIR [Concomitant]
  11. REGLAN [Concomitant]
  12. NEPHROCAPS (ASCORBIC ACID, BIOTIN, CYANOCOBALAMIN, FOLIC ACID, NICOTIN [Concomitant]
  13. PERCOCET [Concomitant]
  14. EPOGEN [Concomitant]
  15. HECTOROL [Concomitant]
  16. RENAGEL [Concomitant]

REACTIONS (7)
  - ANXIETY [None]
  - BURNING SENSATION [None]
  - DIZZINESS [None]
  - FEELING HOT [None]
  - HYPERTENSION [None]
  - HYPOAESTHESIA [None]
  - HYPOTENSION [None]
